FAERS Safety Report 8943326 (Version 2)
Quarter: 2012Q4

REPORT INFORMATION
  Report Type: 
  Country: PT (occurrence: PT)
  Receive Date: 20121203
  Receipt Date: 20121218
  Transmission Date: 20130627
  Serious: Yes (Death, Hospitalization)
  Sender: FDA-Public Use
  Company Number: PT-BAXTER-2012BAX024784

PATIENT
  Sex: Male

DRUGS (15)
  1. EXTRANEAL 75MG/ML - SACO - 5 UNIDADE(S) - 2000 ML [Suspect]
     Indication: CAPD
     Route: 033
     Dates: start: 20100930
  2. PHYSIONEAL 40 GLUCOSE 1.36% W/V / 13.6 MG/ML [Suspect]
     Indication: CAPD
     Route: 033
     Dates: start: 20100930
  3. ASPIRIN [Concomitant]
     Indication: DRUG USE FOR UNKNOWN INDICATION
  4. FOLICIL [Concomitant]
     Indication: DRUG USE FOR UNKNOWN INDICATION
  5. PLAVIX [Concomitant]
     Indication: DRUG USE FOR UNKNOWN INDICATION
  6. ARANESP [Concomitant]
     Indication: DRUG USE FOR UNKNOWN INDICATION
  7. DIGOXIN [Concomitant]
     Indication: DRUG USE FOR UNKNOWN INDICATION
  8. DOMPERIDONE [Concomitant]
     Indication: DRUG USE FOR UNKNOWN INDICATION
  9. IRON [Concomitant]
     Indication: DRUG USE FOR UNKNOWN INDICATION
  10. FUROSEMIDE [Concomitant]
     Indication: DRUG USE FOR UNKNOWN INDICATION
  11. GABAPENTIN [Concomitant]
     Indication: DRUG USE FOR UNKNOWN INDICATION
  12. INSULATARD [Concomitant]
     Indication: DRUG USE FOR UNKNOWN INDICATION
  13. DIULO [Concomitant]
     Indication: DRUG USE FOR UNKNOWN INDICATION
  14. DRAGAVIT [Concomitant]
     Indication: DRUG USE FOR UNKNOWN INDICATION
  15. OMNIC [Concomitant]
     Indication: DRUG USE FOR UNKNOWN INDICATION

REACTIONS (3)
  - Infection [Not Recovered/Not Resolved]
  - Sepsis [Fatal]
  - Multi-organ failure [Fatal]
